FAERS Safety Report 11267125 (Version 2)
Quarter: 2015Q3

REPORT INFORMATION
  Report Type: Spontaneous
  Country: JP (occurrence: JP)
  Receive Date: 20150713
  Receipt Date: 20150723
  Transmission Date: 20151125
  Serious: Yes (Other)
  Sender: FDA-Public Use
  Company Number: JP-PFIZER INC-2015232592

PATIENT
  Age: 6 Year
  Sex: Female

DRUGS (1)
  1. ZOSYN [Suspect]
     Active Substance: PIPERACILLIN SODIUM\TAZOBACTAM SODIUM
     Indication: URINARY TRACT INFECTION
     Dosage: UNK
     Route: 041

REACTIONS (1)
  - Histiocytosis haematophagic [Recovered/Resolved]

NARRATIVE: CASE EVENT DATE: 201506
